FAERS Safety Report 10082759 (Version 2)
Quarter: 2014Q2

REPORT INFORMATION
  Report Type: Spontaneous
  Country: GB (occurrence: GB)
  Receive Date: 20140416
  Receipt Date: 20140605
  Transmission Date: 20141212
  Serious: Yes (Other)
  Sender: FDA-Public Use
  Company Number: GB-ENDO PHARMACEUTICALS INC.-AVEE20140024

PATIENT
  Sex: Male

DRUGS (2)
  1. AVEED [Suspect]
     Indication: PRODUCT USED FOR UNKNOWN INDICATION
     Route: 030
     Dates: start: 2013
  2. AVEED [Suspect]
     Route: 030
     Dates: start: 2011, end: 2013

REACTIONS (8)
  - Urinary tract infection [Unknown]
  - Urine flow decreased [Unknown]
  - Anorectal discomfort [Unknown]
  - Swelling [Unknown]
  - Constipation [Unknown]
  - Weight decreased [Unknown]
  - Overdose [Unknown]
  - Malaise [Unknown]
